FAERS Safety Report 17875621 (Version 2)
Quarter: 2020Q2

REPORT INFORMATION
  Report Type: Spontaneous
  Country: JP (occurrence: JP)
  Receive Date: 20200609
  Receipt Date: 20200612
  Transmission Date: 20200714
  Serious: Yes (Hospitalization)
  Sender: FDA-Public Use
  Company Number: JP-ASTRAZENECA-2020SE70732

PATIENT
  Sex: Female

DRUGS (1)
  1. FASLODEX [Suspect]
     Active Substance: FULVESTRANT
     Indication: BREAST CANCER FEMALE
     Dosage: 500MG, UNKNOWN FREQUENCY
     Route: 030
     Dates: start: 20200408

REACTIONS (4)
  - Hypoaesthesia [Unknown]
  - Metastases to bone [Unknown]
  - Muscle tightness [Unknown]
  - Pain [Not Recovered/Not Resolved]

NARRATIVE: CASE EVENT DATE: 202005
